FAERS Safety Report 17508472 (Version 1)
Quarter: 2020Q1

REPORT INFORMATION
  Report Type: Not Available
  Country: US (occurrence: US)
  Receive Date: 20200306
  Receipt Date: 20200306
  Transmission Date: 20200409
  Serious: Yes (Other)
  Sender: FDA-Public Use
  Company Number: US-EYEPOINT PHARMACEUTICALS, INC.-US-EYP-20-00034

PATIENT
  Age: 71 Year
  Sex: Female

DRUGS (4)
  1. OFLOXACIN. [Concomitant]
     Active Substance: OFLOXACIN
     Route: 061
     Dates: start: 20190606, end: 20190702
  2. DEXYCU [Suspect]
     Active Substance: DEXAMETHASONE
     Indication: POST PROCEDURAL INFLAMMATION
     Route: 031
     Dates: start: 20190429, end: 20190429
  3. DEXYCU [Suspect]
     Active Substance: DEXAMETHASONE
     Route: 031
     Dates: start: 20190605, end: 20190605
  4. OFLOXACIN. [Concomitant]
     Active Substance: OFLOXACIN
     Indication: PRODUCT USED FOR UNKNOWN INDICATION
     Route: 061
     Dates: start: 20190430, end: 20190510

REACTIONS (3)
  - Iris atrophy [Not Recovered/Not Resolved]
  - Device dislocation [Unknown]
  - Anterior chamber cell [Recovered/Resolved]

NARRATIVE: CASE EVENT DATE: 20190430
